FAERS Safety Report 16083590 (Version 1)
Quarter: 2019Q2

REPORT INFORMATION
  Report Type: Spontaneous
  Country: US (occurrence: US)
  Receive Date: 20190315
  Receipt Date: 20190315
  Transmission Date: 20190711
  Serious: Yes (Hospitalization, Disabling)
  Sender: FDA-Public Use
  Company Number: None

PATIENT
  Age: 32 Year
  Sex: Female
  Weight: 85.5 kg

DRUGS (1)
  1. RITUXAN [Suspect]
     Active Substance: RITUXIMAB
     Indication: MYASTHENIA GRAVIS
     Route: 042
     Dates: start: 20181221, end: 20190111

REACTIONS (6)
  - Infusion related reaction [None]
  - Myasthenia gravis crisis [None]
  - Neuropathic muscular atrophy [None]
  - Motor dysfunction [None]
  - Myasthenia gravis [None]
  - Paraparesis [None]

NARRATIVE: CASE EVENT DATE: 20181221
